FAERS Safety Report 12294002 (Version 1)
Quarter: 2016Q2

REPORT INFORMATION
  Report Type: Spontaneous
  Country: US (occurrence: US)
  Receive Date: 20160422
  Receipt Date: 20160422
  Transmission Date: 20160815
  Serious: No
  Sender: FDA-Public Use
  Company Number: US-HOSPIRA-2982962

PATIENT
  Age: 77 Year
  Sex: Female
  Weight: 54.43 kg

DRUGS (4)
  1. FLUMAZENIL. [Concomitant]
     Active Substance: FLUMAZENIL
     Indication: PRODUCT USED FOR UNKNOWN INDICATION
     Dosage: 0.5 UNIT NOT PROVIDED,  ONCE
     Route: 042
     Dates: start: 20150817, end: 20150817
  2. QUELICIN [Suspect]
     Active Substance: SUCCINYLCHOLINE CHLORIDE
     Indication: NEUROMUSCULAR BLOCKING THERAPY
     Dosage: ONCE
     Route: 042
     Dates: start: 20150817, end: 20150817
  3. LABETALOL [Concomitant]
     Active Substance: LABETALOL\LABETALOL HYDROCHLORIDE
     Indication: HYPERTENSION
     Dosage: ONCE
     Route: 042
     Dates: start: 20150817, end: 20150817
  4. BREVITAL SODIUM [Concomitant]
     Active Substance: METHOHEXITAL SODIUM
     Indication: ANAESTHESIA PROCEDURE
     Dosage: ONCE
     Route: 042
     Dates: start: 20150817, end: 20150817

REACTIONS (2)
  - Product quality issue [Recovered/Resolved]
  - Drug effect decreased [Recovered/Resolved]

NARRATIVE: CASE EVENT DATE: 20150817
